FAERS Safety Report 16234320 (Version 1)
Quarter: 2019Q2

REPORT INFORMATION
  Report Type: Spontaneous
  Country: FR (occurrence: FR)
  Receive Date: 20190424
  Receipt Date: 20190424
  Transmission Date: 20190711
  Serious: Yes (Death, Other)
  Sender: FDA-Public Use
  Company Number: FR-MYLANLABS-2019M1036976

PATIENT
  Age: 40 Year
  Sex: Male

DRUGS (2)
  1. QUETIAPINE. [Suspect]
     Active Substance: QUETIAPINE
     Indication: MENTAL DISORDER
     Dosage: 800 MILLIGRAM, PRN
     Dates: start: 201210
  2. VERATRAN [Suspect]
     Active Substance: CLOTIAZEPAM
     Indication: SEDATION
     Dosage: 30 MILLIGRAM, QD
     Dates: start: 201801

REACTIONS (1)
  - Drug use disorder [Fatal]

NARRATIVE: CASE EVENT DATE: 201210
